FAERS Safety Report 4636558-7 (Version None)
Quarter: 2005Q2

REPORT INFORMATION
  Report Type: 
  Country: None (occurrence: None)
  Receive Date: 20050414
  Receipt Date: 20050414
  Transmission Date: 20051028
  Serious: No
  Sender: FDA-Public Use
  Company Number: None

PATIENT
  Age: 64 Year
  Sex: Male
  Weight: 96 kg

DRUGS (14)
  1. CARDIOLITE [Suspect]
     Indication: CARDIAC STRESS TEST
     Dosage: 31.3
     Dates: start: 20050217, end: 20050217
  2. ADENOSINE [Suspect]
     Dosage: 43.8
  3. FOSAMAX [Concomitant]
  4. CALCIUM GLUCONATE [Concomitant]
  5. COMBIVENT [Concomitant]
  6. WARFARIN SODIUM [Concomitant]
  7. DIAZEPAM [Concomitant]
  8. DILTIAZEM [Concomitant]
  9. DOXAZOSIN [Concomitant]
  10. LASIX [Concomitant]
  11. VICODIN [Concomitant]
  12. LISINOPRIL [Concomitant]
  13. LOVASTATIN [Concomitant]
  14. POTASSIUM CHLORIDE [Concomitant]

REACTIONS (2)
  - INFUSION RELATED REACTION [None]
  - WHEEZING [None]
